FAERS Safety Report 20797270 (Version 2)
Quarter: 2022Q2

REPORT INFORMATION
  Report Type: Spontaneous
  Country: ES (occurrence: ES)
  Receive Date: 20220506
  Receipt Date: 20220511
  Transmission Date: 20220721
  Serious: Yes (Hospitalization)
  Sender: FDA-Public Use
  Company Number: ES-AMGEN-ESPSP2022063326

PATIENT
  Age: 37 Year
  Sex: Female

DRUGS (11)
  1. ADALIMUMAB [Suspect]
     Active Substance: ADALIMUMAB
     Indication: Rosai-Dorfman syndrome
     Dosage: UNK
     Route: 065
  2. ISOTRETINOIN [Suspect]
     Active Substance: ISOTRETINOIN
     Indication: Rosai-Dorfman syndrome
     Dosage: UNK
     Route: 065
  3. ISOTRETINOIN [Suspect]
     Active Substance: ISOTRETINOIN
     Dosage: UNK
  4. TACROLIMUS [Suspect]
     Active Substance: TACROLIMUS
     Indication: Rosai-Dorfman syndrome
     Dosage: UNK
     Route: 061
  5. TACROLIMUS [Suspect]
     Active Substance: TACROLIMUS
     Dosage: UNK
  6. COBIMETINIB [Suspect]
     Active Substance: COBIMETINIB
     Indication: Rosai-Dorfman syndrome
     Dosage: 40 MILLIGRAM, QD, (40 MG/DAILY, FOR THE FIRST 21 DAYS OF A 28-DAY CYCLE)
     Route: 065
  7. DOXYCYCLINE [Suspect]
     Active Substance: DOXYCYCLINE
     Indication: Rosai-Dorfman syndrome
     Dosage: UNK
  8. DOXYCYCLINE [Suspect]
     Active Substance: DOXYCYCLINE
     Dosage: UNK
     Route: 048
  9. RIFAMPIN [Suspect]
     Active Substance: RIFAMPIN
     Indication: Rosai-Dorfman syndrome
     Dosage: UNK
     Route: 065
  10. DAPSONE [Concomitant]
     Active Substance: DAPSONE
     Dosage: UNK
  11. RIFAMPIN [Concomitant]
     Active Substance: RIFAMPIN
     Dosage: UNK

REACTIONS (8)
  - Rosai-Dorfman syndrome [Recovered/Resolved]
  - Condition aggravated [Unknown]
  - Disease progression [Unknown]
  - Diarrhoea [Recovered/Resolved]
  - Drug ineffective for unapproved indication [Unknown]
  - Off label use [Unknown]
  - Product use in unapproved indication [Unknown]
  - Drug ineffective [Unknown]
